FAERS Safety Report 7409804-4 (Version None)
Quarter: 2011Q2

REPORT INFORMATION
  Report Type: 
  Country: None (occurrence: None)
  Receive Date: 20110412
  Receipt Date: 20110407
  Transmission Date: 20111010
  Serious: Yes (Hospitalization, Other)
  Sender: FDA-Public Use
  Company Number: BE-ABBOTT-10P-013-0686514-00

PATIENT
  Sex: Female

DRUGS (9)
  1. KEPPRA [Concomitant]
  2. TRILEPTAL [Concomitant]
  3. LAMICTAL [Concomitant]
     Dosage: 70MG DAILY
  4. LAMICTAL [Concomitant]
     Indication: EPILEPSY
     Dosage: 175MG DAILY
  5. SALAZOPYRINE [Concomitant]
     Indication: ANKYLOSING SPONDYLITIS
     Dosage: 4 TABLETS DAILY
  6. KEPPRA [Concomitant]
     Indication: EPILEPSY
  7. TRILEPTAL [Concomitant]
     Indication: EPILEPSY
     Dosage: 3 TABLETS DAILY
  8. HUMIRA [Suspect]
     Indication: ANKYLOSING SPONDYLITIS
     Dates: start: 20101029
  9. PIROMED [Concomitant]
     Indication: ANKYLOSING SPONDYLITIS
     Dosage: 20MG DAILY

REACTIONS (4)
  - COMA [None]
  - GRAND MAL CONVULSION [None]
  - CONVULSION [None]
  - URINARY TRACT INFECTION [None]
